FAERS Safety Report 13056667 (Version 1)
Quarter: 2016Q4

REPORT INFORMATION
  Report Type: Report from Study
  Country: DE (occurrence: DE)
  Receive Date: 20161222
  Receipt Date: 20161222
  Transmission Date: 20170207
  Serious: Yes (Hospitalization)
  Sender: FDA-Public Use
  Company Number: DE-ROCHE-1775481

PATIENT
  Age: 74 Year
  Sex: Male
  Weight: 65 kg

DRUGS (15)
  1. SIMVAHEXAL [Concomitant]
     Active Substance: SIMVASTATIN
     Indication: HYPERCHOLESTEROLAEMIA
     Route: 048
     Dates: start: 2006
  2. CHLORAMBUCIL [Suspect]
     Active Substance: CHLORAMBUCIL
     Indication: CHRONIC LYMPHOCYTIC LEUKAEMIA
     Dosage: MOST RECENT DOSE OF CHLORAMBUCIL PRIOR TO AE ONSET 07/JUN/2016
     Route: 048
     Dates: start: 20160607
  3. FENISTIL (GERMANY) [Concomitant]
     Route: 065
     Dates: start: 20160607, end: 20160607
  4. RANITIDINE. [Concomitant]
     Active Substance: RANITIDINE
     Route: 065
     Dates: start: 20160607, end: 20160607
  5. ALLOPURINOL. [Concomitant]
     Active Substance: ALLOPURINOL
     Indication: PROPHYLAXIS
     Route: 048
     Dates: start: 20160603
  6. PARACETAMOL [Concomitant]
     Active Substance: ACETAMINOPHEN
     Route: 065
     Dates: start: 20160607, end: 20160607
  7. CANDESARTAN [Concomitant]
     Active Substance: CANDESARTAN
     Indication: HYPERTENSION
     Route: 048
     Dates: start: 200602
  8. OBINUTUZUMAB [Suspect]
     Active Substance: OBINUTUZUMAB
     Indication: CHRONIC LYMPHOCYTIC LEUKAEMIA
     Dosage: LAST DOSE PRIOR TO AE: 08/JUN/2016
     Route: 042
     Dates: start: 20160607
  9. SOLU DECORTIN [Concomitant]
     Active Substance: PREDNISOLONE SODIUM SUCCINATE
     Route: 065
     Dates: start: 20160607, end: 20160607
  10. ESIDRIX [Concomitant]
     Active Substance: HYDROCHLOROTHIAZIDE
     Indication: HYPERTENSION
     Route: 048
     Dates: start: 2006
  11. OBINUTUZUMAB [Suspect]
     Active Substance: OBINUTUZUMAB
     Dosage: LAST DOSE PRIOR TO AE: 08/JUN/2016
     Route: 042
     Dates: start: 20160607
  12. ALLOPURINOL. [Concomitant]
     Active Substance: ALLOPURINOL
     Route: 048
     Dates: start: 20160606
  13. RASBURICASE [Concomitant]
     Active Substance: RASBURICASE
     Route: 065
     Dates: start: 20160607, end: 20160608
  14. CRATAEGUTT [Concomitant]
     Indication: CARDIAC FAILURE
     Route: 048
     Dates: start: 200610
  15. METO-SUCCINAT [Concomitant]
     Indication: CARDIAC FAILURE
     Route: 048
     Dates: start: 2006

REACTIONS (1)
  - Neutropenic infection [Not Recovered/Not Resolved]

NARRATIVE: CASE EVENT DATE: 20160610
